FAERS Safety Report 25671702 (Version 1)
Quarter: 2025Q3

REPORT INFORMATION
  Report Type: Report from Study
  Country: CN (occurrence: CN)
  Receive Date: 20250812
  Receipt Date: 20250812
  Transmission Date: 20251020
  Serious: Yes (Hospitalization, Other)
  Sender: TAKEDA
  Company Number: CN-TAKEDA-2025TUS071124

PATIENT
  Age: 2 Year
  Sex: Male

DRUGS (1)
  1. ADVATE [Suspect]
     Active Substance: ANTIHEMOPHILIC FACTOR, HUMAN RECOMBINANT
     Indication: Factor VIII deficiency
     Dosage: UNK UNK, 1/WEEK
     Dates: start: 2024

REACTIONS (2)
  - Seizure [Unknown]
  - Pyrexia [Unknown]

NARRATIVE: CASE EVENT DATE: 20250426
